FAERS Safety Report 4657367-9 (Version None)
Quarter: 2005Q2

REPORT INFORMATION
  Report Type: 
  Country: None (occurrence: None)
  Receive Date: 20050331
  Receipt Date: 20050120
  Transmission Date: 20051028
  Serious: No
  Sender: FDA-Public Use
  Company Number: US110045

PATIENT
  Age: 55 Year
  Sex: Female

DRUGS (2)
  1. NEULASTA [Suspect]
     Indication: CHEMOTHERAPY
     Dates: start: 20041201
  2. SERTRALINE HYDROCHLORIDE [Concomitant]

REACTIONS (2)
  - FATIGUE [None]
  - INSOMNIA [None]
